FAERS Safety Report 7313828-5 (Version None)
Quarter: 2011Q1

REPORT INFORMATION
  Report Type: 
  Country: None (occurrence: None)
  Receive Date: 20110225
  Receipt Date: 20110217
  Transmission Date: 20110831
  Serious: Yes (Other)
  Sender: FDA-Public Use
  Company Number: CA-NOVOPROD-322542

PATIENT
  Age: 63 Year
  Sex: Male
  Weight: 123.3 kg

DRUGS (3)
  1. METFORMIN HCL [Concomitant]
  2. ROSIGLITAZONE [Suspect]
     Indication: PRODUCT USED FOR UNKNOWN INDICATION
  3. VICTOZA [Suspect]
     Indication: TYPE 2 DIABETES MELLITUS
     Dosage: 1.2 G, QD
     Route: 058
     Dates: start: 20101101

REACTIONS (3)
  - DYSPNOEA [None]
  - CARDIAC FAILURE CONGESTIVE [None]
  - OEDEMA [None]
